FAERS Safety Report 6121349-0 (Version None)
Quarter: 2009Q1

REPORT INFORMATION
  Report Type: 
  Country: None (occurrence: None)
  Receive Date: 20090313
  Receipt Date: 20090227
  Transmission Date: 20090719
  Serious: Yes (Hospitalization)
  Sender: FDA-Public Use
  Company Number: 8043634

PATIENT
  Age: 18 Year
  Sex: Male
  Weight: 58.97 kg

DRUGS (2)
  1. CIMZIA [Suspect]
     Indication: COLITIS ULCERATIVE
     Dosage: 400 MG 1/2W SC
     Route: 058
     Dates: start: 20090209
  2. PREDNISONE [Concomitant]

REACTIONS (4)
  - ABDOMINAL PAIN [None]
  - DIARRHOEA [None]
  - HYPERSENSITIVITY [None]
  - WEIGHT DECREASED [None]
